FAERS Safety Report 7138841-2 (Version None)
Quarter: 2010Q4

REPORT INFORMATION
  Report Type: 
  Country: None (occurrence: None)
  Receive Date: 20101206
  Receipt Date: 20101203
  Transmission Date: 20110411
  Serious: Yes (Hospitalization)
  Sender: FDA-Public Use
  Company Number: IT-AMGEN-ITASP2010007328

PATIENT

DRUGS (1)
  1. NPLATE [Suspect]
     Indication: THROMBOCYTOPENIA
     Dosage: 250 A?G, QWK
     Route: 058
     Dates: start: 20101103, end: 20101117

REACTIONS (3)
  - DIARRHOEA [None]
  - EPISTAXIS [None]
  - MOUTH HAEMORRHAGE [None]
